FAERS Safety Report 8801902 (Version 1)
Quarter: 2012Q4

REPORT INFORMATION
  Report Type: 
  Country: US (occurrence: US)
  Receive Date: 20120921
  Receipt Date: 20120921
  Transmission Date: 20130627
  Serious: No
  Sender: FDA-Public Use
  Company Number: US-PFIZER INC-2012232226

PATIENT
  Age: 66 Year
  Sex: Female
  Weight: 67.6 kg

DRUGS (2)
  1. PREMPRO [Suspect]
     Indication: MENOPAUSAL SYMPTOMS
     Dosage: 1 DF, 1x/day, (0.3/1.5mg)
     Route: 048
     Dates: start: 2007
  2. PREMPRO [Suspect]
     Dosage: 1 DF, 1x/day, (0.3/1.5mg)
     Route: 048
     Dates: start: 20120810

REACTIONS (3)
  - Bone density decreased [Unknown]
  - Alopecia [Not Recovered/Not Resolved]
  - Chromaturia [Recovered/Resolved]
